FAERS Safety Report 9613158 (Version 1)
Quarter: 2013Q4

REPORT INFORMATION
  Report Type: Spontaneous
  Country: US (occurrence: US)
  Receive Date: 20131010
  Receipt Date: 20131010
  Transmission Date: 20140711
  Serious: Yes (Hospitalization)
  Sender: FDA-Public Use
  Company Number: US-TEVA-437232USA

PATIENT
  Age: 61 Year
  Sex: Male
  Weight: 116 kg

DRUGS (10)
  1. LOSARTAN [Suspect]
     Indication: BLOOD PRESSURE INCREASED
     Dosage: THEN 100MG ONCE DAILY
     Route: 065
  2. LOSARTAN [Suspect]
     Indication: BLOOD PRESSURE INCREASED
     Route: 065
  3. VALSARTAN [Suspect]
     Indication: BLOOD PRESSURE INCREASED
     Route: 065
  4. ASPIRIN [Concomitant]
     Route: 065
  5. METFORMIN [Concomitant]
     Route: 065
  6. ATENOLOL [Concomitant]
     Route: 065
  7. SIMVASTATIN [Concomitant]
     Route: 065
  8. RANITIDINE [Concomitant]
     Route: 065
  9. NOVOLIN 70/30 [Concomitant]
     Dosage: 75 UNITS EVERY MORNING, 85 UNITS EVERY EVENING
     Route: 058
  10. TEMAZEPAM [Concomitant]
     Dosage: 15-30MG DAILY AS NEEDED AT BEDTIME
     Route: 065

REACTIONS (1)
  - Thrombocytopenia [Recovered/Resolved]
